FAERS Safety Report 11237026 (Version 4)
Quarter: 2015Q3

REPORT INFORMATION
  Report Type: Spontaneous
  Country: US (occurrence: US)
  Receive Date: 20150703
  Receipt Date: 20150812
  Transmission Date: 20151125
  Serious: No
  Sender: FDA-Public Use
  Company Number: US-009507513-1507USA001296

PATIENT
  Sex: Male

DRUGS (2)
  1. INVANZ [Suspect]
     Active Substance: ERTAPENEM SODIUM
     Indication: CYSTITIS
     Dosage: 1 MG, UNK, FOR 9 DAYS
     Route: 030
     Dates: start: 20150623, end: 2015
  2. INVANZ [Suspect]
     Active Substance: ERTAPENEM SODIUM
     Dosage: 1 UNK, UNK
     Route: 042
     Dates: start: 2015, end: 2015

REACTIONS (6)
  - Incorrect route of drug administration [Unknown]
  - Drug prescribing error [Unknown]
  - Product quality issue [Unknown]
  - No adverse event [Unknown]
  - Product preparation error [Unknown]
  - Product reconstitution issue [Unknown]

NARRATIVE: CASE EVENT DATE: 2015
